FAERS Safety Report 4982318-7 (Version None)
Quarter: 2006Q2

REPORT INFORMATION
  Report Type: 
  Country: None (occurrence: None)
  Receive Date: 20060425
  Receipt Date: 20051206
  Transmission Date: 20061013
  Serious: Yes (Hospitalization)
  Sender: FDA-Public Use
  Company Number: US-ROCHE-427646

PATIENT
  Age: 49 Year
  Sex: Male

DRUGS (6)
  1. PEGASYS [Suspect]
     Dosage: ROUTE REPORTED AS INJ.
     Route: 050
     Dates: start: 20051105
  2. COPEGUS [Suspect]
     Route: 048
     Dates: start: 20051105
  3. COPEGUS [Suspect]
     Route: 048
     Dates: start: 20051210
  4. PROGRAF [Concomitant]
     Indication: TRANSPLANT
  5. CELLCEPT [Concomitant]
     Indication: TRANSPLANT
  6. VALCYTE [Concomitant]
     Indication: TRANSPLANT

REACTIONS (15)
  - AMMONIA INCREASED [None]
  - ASPARTATE AMINOTRANSFERASE INCREASED [None]
  - BACK PAIN [None]
  - DEPRESSION [None]
  - DIARRHOEA [None]
  - FUNGAL SKIN INFECTION [None]
  - HAEMATOCRIT DECREASED [None]
  - HAEMOGLOBIN DECREASED [None]
  - LIVER TRANSPLANT REJECTION [None]
  - MEMORY IMPAIRMENT [None]
  - PLATELET COUNT DECREASED [None]
  - PYREXIA [None]
  - RASH [None]
  - THERAPY NON-RESPONDER [None]
  - WHITE BLOOD CELL COUNT DECREASED [None]
